FAERS Safety Report 25515339 (Version 2)
Quarter: 2025Q3

REPORT INFORMATION
  Report Type: Report from Study
  Country: US (occurrence: US)
  Receive Date: 20250704
  Receipt Date: 20250715
  Transmission Date: 20251020
  Serious: Yes (Hospitalization, Other)
  Sender: ABBVIE
  Company Number: US-ABBVIE-6352530

PATIENT
  Age: 85 Year
  Sex: Female
  Weight: 68.038 kg

DRUGS (1)
  1. VIBERZI [Suspect]
     Active Substance: ELUXADOLINE
     Indication: Irritable bowel syndrome
     Dosage: FORM STRENGTH: 75 MILLIGRAM, START DATE TEXT: MORE THAN 6 YEARS
     Route: 048

REACTIONS (2)
  - Cerebrovascular accident [Recovered/Resolved]
  - Carotid artery thrombosis [Recovered/Resolved]

NARRATIVE: CASE EVENT DATE: 20250626
